FAERS Safety Report 6149786-9 (Version None)
Quarter: 2009Q2

REPORT INFORMATION
  Report Type: 
  Country: None (occurrence: None)
  Receive Date: 20090407
  Receipt Date: 20090407
  Transmission Date: 20091009
  Serious: Yes (Hospitalization)
  Sender: FDA-Public Use
  Company Number: None

PATIENT
  Age: 62 Year
  Sex: Female
  Weight: 55 kg

DRUGS (1)
  1. CISPLATIN [Suspect]
     Indication: SMALL CELL CARCINOMA
     Dosage: UNKNOWN UNKNOWN IV
     Route: 042

REACTIONS (3)
  - DRUG TOXICITY [None]
  - HYPOVOLAEMIA [None]
  - RENAL FAILURE ACUTE [None]
